FAERS Safety Report 9496491 (Version 3)
Quarter: 2014Q1

REPORT INFORMATION
  Report Type: Spontaneous
  Country: TW (occurrence: TW)
  Receive Date: 20130904
  Receipt Date: 20140127
  Transmission Date: 20141002
  Serious: Yes (Hospitalization, Other)
  Sender: FDA-Public Use
  Company Number: PHHY2013TW095069

PATIENT
  Age: 20 Year
  Sex: Female

DRUGS (1)
  1. GILENYA [Suspect]
     Indication: RELAPSING-REMITTING MULTIPLE SCLEROSIS
     Dosage: 0.5 MG, QD
     Route: 048
     Dates: start: 20130527

REACTIONS (7)
  - Status epilepticus [Recovering/Resolving]
  - Convulsion [Recovered/Resolved]
  - Computerised tomogram abnormal [Recovering/Resolving]
  - Speech disorder [Recovering/Resolving]
  - Abnormal behaviour [Recovering/Resolving]
  - Pleocytosis [Recovering/Resolving]
  - Multiple sclerosis relapse [Unknown]
